FAERS Safety Report 18731030 (Version 2)
Quarter: 2021Q3

REPORT INFORMATION
  Report Type: Report from Study
  Country: JP (occurrence: JP)
  Receive Date: 20210112
  Receipt Date: 20210729
  Transmission Date: 20211014
  Serious: Yes (Other)
  Sender: FDA-Public Use
  Company Number: JP-ASTRAZENECA-2020SF34885

PATIENT
  Age: 52 Year
  Sex: Male
  Weight: 65 kg

DRUGS (3)
  1. IMFINZI [Suspect]
     Active Substance: DURVALUMAB
     Indication: NON-SMALL CELL LUNG CANCER
     Route: 041
     Dates: start: 20200929, end: 20210330
  2. IMFINZI [Suspect]
     Active Substance: DURVALUMAB
     Indication: NON-SMALL CELL LUNG CANCER
     Route: 041
     Dates: start: 20200331, end: 20200804
  3. ENTECAVIR HYDRATE [Concomitant]
     Indication: HEPATITIS B E ANTIBODY POSITIVE
     Dosage: PERORAL MEDICINE
     Route: 048
     Dates: start: 20200204

REACTIONS (2)
  - Hypothyroidism [Not Recovered/Not Resolved]
  - Pulmonary artery thrombosis [Not Recovered/Not Resolved]

NARRATIVE: CASE EVENT DATE: 20200526
